FAERS Safety Report 8051485-3 (Version None)
Quarter: 2012Q1

REPORT INFORMATION
  Report Type: 
  Country: None (occurrence: None)
  Receive Date: 20120117
  Receipt Date: 20120105
  Transmission Date: 20120608
  Serious: Yes (Hospitalization)
  Sender: FDA-Public Use
  Company Number: JP-ASTRAZENECA-2011SE78297

PATIENT
  Sex: Male

DRUGS (6)
  1. LOXONIN [Suspect]
     Dosage: DOSE UNKNOWN
     Route: 065
  2. NEXIUM [Suspect]
     Route: 048
  3. DETANTOL [Suspect]
     Dosage: DOSE UNKNOWN
     Route: 065
  4. RABEPRAZOLE SODIUM [Suspect]
     Dosage: DOSE UNKNOWN
     Route: 065
  5. ZITHROMAX [Suspect]
     Dosage: DOSE UNKNOWN
     Route: 065
  6. IBRUPROFEN [Suspect]
     Dosage: DOSE UNKNOWN
     Route: 065

REACTIONS (3)
  - URTICARIA [None]
  - NASOPHARYNGITIS [None]
  - LIVER DISORDER [None]
